FAERS Safety Report 25687548 (Version 1)
Quarter: 2025Q3

REPORT INFORMATION
  Report Type: Report from Study
  Country: CN (occurrence: CN)
  Receive Date: 20250817
  Receipt Date: 20250817
  Transmission Date: 20251020
  Serious: Yes (Other)
  Sender: SANOFI AVENTIS
  Company Number: CN-DialogSolutions-SAAVPROD-PI810606-C2

PATIENT

DRUGS (3)
  1. OXALIPLATIN [Suspect]
     Active Substance: OXALIPLATIN
     Indication: Adenocarcinoma
     Dosage: 130 MG/M2, Q3W
     Route: 041
  2. CAPECITABINE [Suspect]
     Active Substance: CAPECITABINE
     Indication: Adenocarcinoma gastric
     Dosage: 1000 MG/M2, BID,, DAYS 1-14, EVERY 3 WEEKS
     Route: 048
  3. SINTILIMAB [Suspect]
     Active Substance: SINTILIMAB
     Indication: Adenocarcinoma gastric
     Dosage: 200 MG, Q3W,
     Route: 041

REACTIONS (1)
  - Hypothyroidism [Unknown]
